FAERS Safety Report 7969752-8 (Version None)
Quarter: 2011Q4

REPORT INFORMATION
  Report Type: 
  Country: None (occurrence: None)
  Receive Date: 20111212
  Receipt Date: 20111129
  Transmission Date: 20120403
  Serious: Yes (Hospitalization, Other)
  Sender: FDA-Public Use
  Company Number: US-BAYER-2011-006280

PATIENT
  Age: 52 Year
  Sex: Male
  Weight: 71 kg

DRUGS (9)
  1. ACETYLSALICYLIC ACID SRT [Concomitant]
  2. TRASYLOL [Suspect]
     Indication: CORONARY ARTERY BYPASS
  3. NORCO [Concomitant]
  4. TRASYLOL [Suspect]
     Indication: TRICUSPID VALVE REPAIR
     Dosage: 21-OCT-2005^ PER BILLING APROTININ 30,000 KIU BILLED
     Dates: start: 20051024
  5. TRASYLOL [Suspect]
     Indication: MITRAL VALVE REPAIR
  6. ZAROXOLYN [Concomitant]
  7. LASIX [Concomitant]
  8. SYNTHROID [Concomitant]
  9. NORVASC [Concomitant]

REACTIONS (12)
  - EMOTIONAL DISTRESS [None]
  - NERVOUSNESS [None]
  - ANXIETY [None]
  - PAIN [None]
  - UNEVALUABLE EVENT [None]
  - RENAL FAILURE [None]
  - DEPRESSION [None]
  - FEAR OF DEATH [None]
  - MULTI-ORGAN FAILURE [None]
  - INJURY [None]
  - FEAR [None]
  - RENAL INJURY [None]
